FAERS Safety Report 4330547-8 (Version None)
Quarter: 2004Q1

REPORT INFORMATION
  Report Type: 
  Country: None (occurrence: None)
  Receive Date: 20040329
  Receipt Date: 20040315
  Transmission Date: 20041129
  Serious: Yes (Hospitalization, Other)
  Sender: FDA-Public Use
  Company Number: 2004017408

PATIENT
  Sex: Female

DRUGS (2)
  1. ZOLOFT [Suspect]
     Indication: DEPRESSION
  2. LEVONORGESTREL [Concomitant]

REACTIONS (3)
  - BIPOLAR DISORDER [None]
  - BLOOD PRESSURE SYSTOLIC INCREASED [None]
  - HYPERTENSION [None]
